FAERS Safety Report 4367376-5 (Version None)
Quarter: 2004Q2

REPORT INFORMATION
  Report Type: 
  Country: None (occurrence: None)
  Receive Date: 20040601
  Receipt Date: 20040216
  Transmission Date: 20050107
  Serious: Yes (Death)
  Sender: FDA-Public Use
  Company Number: PHBS2004JP02355

PATIENT
  Age: 15 Year
  Sex: Female
  Weight: 53 kg

DRUGS (14)
  1. SIMULECT [Suspect]
     Indication: RENAL TRANSPLANT
     Dosage: 20 MG/DAY
     Dates: start: 20031007, end: 20031007
  2. SIMULECT [Suspect]
     Dosage: 20 MG/DAY
     Dates: start: 20031011, end: 20031011
  3. PROGRAF [Suspect]
     Indication: RENAL TRANSPLANT
     Dosage: 1.5 MG/DAY
     Route: 042
     Dates: start: 20031007, end: 20031012
  4. PROGRAF [Suspect]
     Dosage: 0.48 MG/DAY
     Route: 042
     Dates: start: 20031121, end: 20031123
  5. CELLCEPT [Suspect]
     Indication: RENAL TRANSPLANT
     Dosage: 1 G/D
     Route: 048
     Dates: start: 20031005, end: 20031121
  6. PROGRAF [Suspect]
     Dosage: 6.5 MG/DAY
     Route: 048
     Dates: start: 20031013, end: 20031120
  7. MEDROL [Suspect]
     Indication: RENAL TRANSPLANT
     Dosage: 20 MG/DAY
     Route: 048
     Dates: start: 20031013
  8. MEDROL [Suspect]
     Dosage: 12 MG/DAY
     Route: 048
     Dates: end: 20031123
  9. SOLU-MEDROL [Concomitant]
     Dosage: 250 MG/DAY
     Route: 042
     Dates: start: 20031007, end: 20031012
  10. BAKTAR [Concomitant]
     Dosage: 2 G/DAY
     Route: 048
     Dates: start: 20031017, end: 20031117
  11. ACYCLOVIR [Concomitant]
     Indication: HERPES ZOSTER
     Dosage: 750 MG/DAY
     Route: 042
     Dates: start: 20031122, end: 20031123
  12. POLIGLOBIN N [Concomitant]
     Dosage: 5 G/DAY
     Route: 042
     Dates: start: 20031122, end: 20031122
  13. ATARAX [Concomitant]
     Dosage: 2 DF/DAY
     Dates: start: 20031120, end: 20031120
  14. DECADRON [Concomitant]
     Dates: start: 20031120, end: 20031120

REACTIONS (26)
  - BACK PAIN [None]
  - BLISTER [None]
  - BLOOD ALKALINE PHOSPHATASE INCREASED [None]
  - BLOOD LACTATE DEHYDROGENASE INCREASED [None]
  - BLOOD POTASSIUM INCREASED [None]
  - BLOOD SODIUM DECREASED [None]
  - CARDIAC ARREST [None]
  - COMA [None]
  - CONVULSION [None]
  - DEPRESSED LEVEL OF CONSCIOUSNESS [None]
  - DISSEMINATED INTRAVASCULAR COAGULATION [None]
  - GAMMA-GLUTAMYLTRANSFERASE INCREASED [None]
  - GAZE PALSY [None]
  - HEPATIC ENZYME INCREASED [None]
  - HERPES ZOSTER [None]
  - IMMUNOSUPPRESSION [None]
  - LIVER DISORDER [None]
  - PLATELET COUNT DECREASED [None]
  - PRURITUS [None]
  - PYREXIA [None]
  - RASH PAPULAR [None]
  - RESPIRATORY ARREST [None]
  - TRANSAMINASES INCREASED [None]
  - VARICELLA ZOSTER VIRUS SEROLOGY POSITIVE [None]
  - VENTRICULAR TACHYCARDIA [None]
  - WHITE BLOOD CELL COUNT INCREASED [None]
